FAERS Safety Report 10472941 (Version 4)
Quarter: 2014Q4

REPORT INFORMATION
  Report Type: Spontaneous
  Country: GB (occurrence: None)
  Receive Date: 20140922
  Receipt Date: 20141114
  Transmission Date: 20150528
  Serious: Yes (Other)
  Sender: FDA-Public Use
  Company Number: 2014GB0382

PATIENT
  Age: 16 Year
  Sex: Female

DRUGS (1)
  1. KINERET [Suspect]
     Active Substance: ANAKINRA
     Indication: AUTOINFLAMMATORY DISEASE
     Dosage: 42.8571 MG  (150 MG, 2 IN 1 WK), SUBCUTANEOUS
     Route: 058
     Dates: start: 20130301

REACTIONS (9)
  - Disorientation [None]
  - Chills [None]
  - Product quality issue [None]
  - Headache [None]
  - Dizziness [None]
  - Confusional state [None]
  - Tremor [None]
  - Fatigue [None]
  - Body temperature decreased [None]

NARRATIVE: CASE EVENT DATE: 20140831
